FAERS Safety Report 4546452-8 (Version None)
Quarter: 2005Q1

REPORT INFORMATION
  Report Type: 
  Country: None (occurrence: None)
  Receive Date: 20050105
  Receipt Date: 20041221
  Transmission Date: 20050727
  Serious: Yes (Death)
  Sender: FDA-Public Use
  Company Number: 2004AL000604

PATIENT
  Age: 40 Year
  Sex: Male

DRUGS (4)
  1. ACETAMINOPHEN [Suspect]
  2. ACETAMINOPHEN [Suspect]
  3. CARBURETOR CLEANER (METHANOL) [Suspect]
     Dosage: PO
     Route: 048
  4. BRAKE CLEANER [Suspect]
     Dosage: PO
     Route: 048

REACTIONS (13)
  - BLOOD BICARBONATE INCREASED [None]
  - BLOOD CHLORIDE DECREASED [None]
  - BLOOD CREATININE INCREASED [None]
  - BLOOD SODIUM DECREASED [None]
  - BLOOD UREA INCREASED [None]
  - CARDIAC DISORDER [None]
  - CHEST PAIN [None]
  - EJECTION FRACTION DECREASED [None]
  - HEPATITIS [None]
  - INTENTIONAL MISUSE [None]
  - INTERNATIONAL NORMALISED RATIO INCREASED [None]
  - OCCUPATIONAL EXPOSURE TO TOXIC AGENT [None]
  - OVERDOSE [None]
